FAERS Safety Report 9632276 (Version 2)
Quarter: 2013Q4

REPORT INFORMATION
  Report Type: Report from Study
  Country: BR (occurrence: BR)
  Receive Date: 20131018
  Receipt Date: 20131222
  Transmission Date: 20140711
  Serious: No
  Sender: FDA-Public Use
  Company Number: PHHY2013BR117644

PATIENT
  Age: 66 Year
  Sex: Female

DRUGS (4)
  1. EXFORGE HCT [Suspect]
     Indication: BLOOD PRESSURE ABNORMAL
     Dosage: 1 DF (160/5/12.5 MG), QD
     Route: 048
     Dates: end: 20131011
  2. CRESTOR [Concomitant]
     Indication: BLOOD CHOLESTEROL INCREASED
     Dosage: 1 DF, A DAY
     Route: 048
  3. INDAPEN//INDAPAMIDE [Concomitant]
     Indication: HYPERTENSION
     Dosage: 1 DF, A DAY
     Route: 048
  4. CONCOR [Concomitant]
     Indication: HYPERTENSION
     Dosage: 1 DF, A DAY
     Route: 048

REACTIONS (3)
  - Feeling abnormal [Recovering/Resolving]
  - Fatigue [Recovered/Resolved]
  - Dyspnoea [Recovered/Resolved]
